FAERS Safety Report 6556445-7 (Version None)
Quarter: 2010Q1

REPORT INFORMATION
  Report Type: 
  Country: None (occurrence: None)
  Receive Date: 20100128
  Receipt Date: 20100121
  Transmission Date: 20100710
  Serious: Yes (Hospitalization)
  Sender: FDA-Public Use
  Company Number: B0629519A

PATIENT
  Sex: Female

DRUGS (1)
  1. AUGMENTIN [Suspect]
     Indication: PAROTITIS
     Dosage: 2G PER DAY
     Route: 048
     Dates: start: 20091112, end: 20091117

REACTIONS (3)
  - PRURITUS [None]
  - SKIN LESION [None]
  - URTICARIA [None]
